FAERS Safety Report 4827104-3 (Version None)
Quarter: 2005Q4

REPORT INFORMATION
  Report Type: 
  Country: None (occurrence: None)
  Receive Date: 20051114
  Receipt Date: 20051024
  Transmission Date: 20060501
  Serious: No
  Sender: FDA-Public Use
  Company Number: NL-GLAXOSMITHKLINE-B0398663A

PATIENT
  Age: 24 Year
  Sex: Female

DRUGS (2)
  1. SUMATRIPTAN SUCCINATE [Suspect]
     Indication: DRUG USE FOR UNKNOWN INDICATION
     Route: 045
     Dates: start: 19990101
  2. CYPROTERONE ACETATE + ETHINYLESTRADIOL [Concomitant]
     Dates: start: 20040903

REACTIONS (1)
  - ARTHRALGIA [None]
